FAERS Safety Report 9192312 (Version 1)
Quarter: 2013Q1

REPORT INFORMATION
  Report Type: Spontaneous
  Country: US (occurrence: US)
  Receive Date: 20130327
  Receipt Date: 20130327
  Transmission Date: 20140127
  Serious: Yes (Other)
  Sender: FDA-Public Use
  Company Number: US-JNJFOC-20130312280

PATIENT
  Age: 53 Year
  Sex: Female

DRUGS (1)
  1. NICOTINE GUM [Suspect]
     Indication: SMOKING CESSATION THERAPY
     Dosage: SINCE 10 YEARS.
     Route: 065

REACTIONS (5)
  - Nicotine dependence [Not Recovered/Not Resolved]
  - Tobacco poisoning [Not Recovered/Not Resolved]
  - Intentional drug misuse [Unknown]
  - Dizziness [Not Recovered/Not Resolved]
  - Nausea [Not Recovered/Not Resolved]
